FAERS Safety Report 25847690 (Version 1)
Quarter: 2025Q3

REPORT INFORMATION
  Report Type: Spontaneous
  Country: US (occurrence: None)
  Receive Date: 20250924
  Receipt Date: 20250924
  Transmission Date: 20251021
  Serious: Yes (Life-Threatening, Hospitalization)
  Sender: FDA-CTU
  Company Number: None

PATIENT
  Age: 76 Year
  Sex: Female
  Weight: 88.65 kg

DRUGS (1)
  1. MOUNJARO [Suspect]
     Active Substance: TIRZEPATIDE
     Indication: Obesity
     Dates: start: 20250425, end: 20250825

REACTIONS (4)
  - Intestinal obstruction [None]
  - Volvulus [None]
  - Intestinal perforation [None]
  - Pneumoperitoneum [None]

NARRATIVE: CASE EVENT DATE: 20250809
